FAERS Safety Report 12573523 (Version 4)
Quarter: 2017Q1

REPORT INFORMATION
  Report Type: Spontaneous
  Country: US (occurrence: US)
  Receive Date: 20160720
  Receipt Date: 20170203
  Transmission Date: 20170428
  Serious: No
  Sender: FDA-Public Use
  Company Number: US-PFIZER INC-2016314442

PATIENT
  Age: 71 Year
  Sex: Female
  Weight: 82 kg

DRUGS (4)
  1. IBRANCE [Suspect]
     Active Substance: PALBOCICLIB
     Dosage: 75 MG, CYCLIC (DAY 1-21 Q 28 DAYS)
     Route: 048
     Dates: start: 20160607
  2. IBRANCE [Suspect]
     Active Substance: PALBOCICLIB
     Dosage: 75 MG, CYCLIC (DAYS 1-21 Q 28 DAYS)
     Route: 048
     Dates: start: 20160607
  3. IBRANCE [Suspect]
     Active Substance: PALBOCICLIB
     Dosage: 75 MG, CYCLIC (DAY 1-21 Q 28 DAYS)
     Route: 048
     Dates: start: 20160607
  4. IBRANCE [Suspect]
     Active Substance: PALBOCICLIB
     Indication: BREAST CANCER METASTATIC
     Dosage: 75 MG, CYCLIC (D1-D21 Q 28D)
     Route: 048
     Dates: start: 20160607, end: 20160621

REACTIONS (15)
  - Dizziness [Unknown]
  - Hypoaesthesia [Unknown]
  - Epistaxis [Unknown]
  - Rhinorrhoea [Unknown]
  - Sputum discoloured [Not Recovered/Not Resolved]
  - Haemoptysis [Not Recovered/Not Resolved]
  - Sinusitis [Not Recovered/Not Resolved]
  - Drug hypersensitivity [Unknown]
  - Wheezing [Not Recovered/Not Resolved]
  - Dyspnoea [Recovered/Resolved]
  - Joint swelling [Not Recovered/Not Resolved]
  - Asthenia [Unknown]
  - Fatigue [Not Recovered/Not Resolved]
  - Carpal tunnel syndrome [Unknown]
  - White blood cell count decreased [Unknown]

NARRATIVE: CASE EVENT DATE: 20160816
